FAERS Safety Report 17174555 (Version 1)
Quarter: 2019Q4

REPORT INFORMATION
  Report Type: Spontaneous
  Country: US (occurrence: US)
  Receive Date: 20191126
  Receipt Date: 20191126
  Transmission Date: 20200122
  Serious: No
  Sender: FDA-Public Use
  Company Number: None

PATIENT
  Age: 80 Year
  Sex: Female
  Weight: 46.27 kg

DRUGS (10)
  1. GARLIQUE [Concomitant]
     Active Substance: GARLIC
  2. SINGULAIR [Concomitant]
     Active Substance: MONTELUKAST SODIUM
  3. ANTIOXIDANT VITAMINS [Concomitant]
  4. OMEPRAZOLE. [Concomitant]
     Active Substance: OMEPRAZOLE
  5. CINNAMON. [Concomitant]
     Active Substance: CINNAMON
  6. FISH OIL [Concomitant]
     Active Substance: FISH OIL
  7. ASPIRIN-DIPYRIDAMOLE ER 25-200 (GEN FOR AGGRENOX [Suspect]
     Active Substance: ASPIRIN\DIPYRIDAMOLE
     Indication: TRANSIENT ISCHAEMIC ATTACK
     Dosage: ?          QUANTITY:25-200;?
     Route: 048
     Dates: start: 20190919, end: 20190928
  8. LISINOPRIL. [Concomitant]
     Active Substance: LISINOPRIL
  9. CALCIUM SUPPLEMENT [Concomitant]
     Active Substance: CALCIUM
  10. CETIRIZINE [Concomitant]
     Active Substance: CETIRIZINE HYDROCHLORIDE

REACTIONS (1)
  - Myalgia [None]

NARRATIVE: CASE EVENT DATE: 20190924
